FAERS Safety Report 7542105-2 (Version None)
Quarter: 2011Q2

REPORT INFORMATION
  Report Type: 
  Country: None (occurrence: None)
  Receive Date: 20110606
  Receipt Date: 20110531
  Transmission Date: 20111010
  Serious: Yes (Other)
  Sender: FDA-Public Use
  Company Number: TRP_07678_2011

PATIENT
  Sex: Female

DRUGS (8)
  1. RABEPRAZOLE SODIUM [Concomitant]
  2. SELBEX [Concomitant]
  3. NOVOLIN 30R /00806401/ [Concomitant]
  4. AMLODIPINE [Concomitant]
  5. MICARDIS [Concomitant]
  6. ADVAFERON [Suspect]
     Indication: HEPATITIS C
     Dosage: (9 MILLION IU 3X/WEEK SUBCUTANEOUS), (9 MILLION IU 2X/WEEK, [REGIMEN #2] SUBCUTANEOUS)
     Route: 058
     Dates: start: 20060407, end: 20110302
  7. ADVAFERON [Suspect]
     Indication: HEPATITIS C
     Dosage: (9 MILLION IU 3X/WEEK SUBCUTANEOUS), (9 MILLION IU 2X/WEEK, [REGIMEN #2] SUBCUTANEOUS)
     Route: 058
     Dates: start: 20110305
  8. LIVACT [Concomitant]

REACTIONS (2)
  - INJECTION SITE NECROSIS [None]
  - INJECTION SITE INDURATION [None]
